FAERS Safety Report 13731558 (Version 2)
Quarter: 2017Q3

REPORT INFORMATION
  Report Type: Report from Study
  Country: US (occurrence: US)
  Receive Date: 20170707
  Receipt Date: 20170801
  Transmission Date: 20171127
  Serious: Yes (Hospitalization)
  Sender: FDA-Public Use
  Company Number: US-PFIZER INC-2017271036

PATIENT
  Age: 59 Year
  Sex: Female

DRUGS (1)
  1. IBRANCE [Suspect]
     Active Substance: PALBOCICLIB
     Indication: BREAST CANCER
     Dosage: 125 MG, DAILY
     Route: 048
     Dates: start: 20170608, end: 201706

REACTIONS (11)
  - Dizziness [Unknown]
  - Epistaxis [Unknown]
  - White blood cell count decreased [Unknown]
  - Hypotension [Unknown]
  - Dysgeusia [Unknown]
  - Bacterial test positive [Unknown]
  - Asthenia [Unknown]
  - Dry mouth [Unknown]
  - Visual impairment [Unknown]
  - Immune system disorder [Unknown]
  - Dyspnoea [Unknown]
